FAERS Safety Report 6018016-0 (Version None)
Quarter: 2008Q4

REPORT INFORMATION
  Report Type: 
  Country: None (occurrence: None)
  Receive Date: 20081223
  Receipt Date: 20081215
  Transmission Date: 20090506
  Serious: Yes (Hospitalization)
  Sender: FDA-Public Use
  Company Number: B0550388A

PATIENT
  Age: 53 Year
  Sex: Male

DRUGS (4)
  1. KIVEXA [Suspect]
     Indication: HIV INFECTION
     Dosage: 1TAB PER DAY
     Route: 048
     Dates: start: 20070820
  2. PREZISTA [Suspect]
     Indication: HIV INFECTION
     Dosage: 4UNIT PER DAY
     Route: 048
     Dates: start: 20080820
  3. NORVIR [Suspect]
     Indication: HIV INFECTION
     Dosage: 2TAB PER DAY
     Route: 048
     Dates: start: 20070820
  4. RALTEGRAVIR [Concomitant]
     Indication: HIV INFECTION
     Route: 048

REACTIONS (3)
  - HYPERGLYCAEMIA [None]
  - INSULIN RESISTANT DIABETES [None]
  - WEIGHT DECREASED [None]
